FAERS Safety Report 10241305 (Version 1)
Quarter: 2014Q2

REPORT INFORMATION
  Report Type: Spontaneous
  Country: DK (occurrence: None)
  Receive Date: 20140613
  Receipt Date: 20140613
  Transmission Date: 20141212
  Serious: Yes (Death, Hospitalization)
  Sender: FDA-Public Use
  Company Number: ABR_01678_2014

PATIENT
  Age: 33 Year
  Sex: Male

DRUGS (2)
  1. AMPHETAMINE [Suspect]
     Indication: PRODUCT USED FOR UNKNOWN INDICATION
     Dosage: DF
  2. METHAMPHETAMINE (METHAMPHETAMINE) [Suspect]
     Indication: PRODUCT USED FOR UNKNOWN INDICATION
     Dosage: DF

REACTIONS (13)
  - Coma [None]
  - Cerebral infarction [None]
  - Multi-organ failure [None]
  - Cerebral disorder [None]
  - Necrosis [None]
  - Nervous system disorder [None]
  - Brain oedema [None]
  - Hepatic steatosis [None]
  - Bronchopneumonia [None]
  - Renal ischaemia [None]
  - Brain injury [None]
  - Cerebral ischaemia [None]
  - Drug abuse [None]
